FAERS Safety Report 17292705 (Version 1)
Quarter: 2020Q1

REPORT INFORMATION
  Report Type: Spontaneous
  Country: AT (occurrence: AT)
  Receive Date: 20200121
  Receipt Date: 20200121
  Transmission Date: 20200409
  Serious: Yes (Other)
  Sender: FDA-Public Use
  Company Number: AT-BAYER-2020-003148

PATIENT
  Age: 67 Year

DRUGS (1)
  1. NEXAVAR [Suspect]
     Active Substance: SORAFENIB
     Indication: HEPATOCELLULAR CARCINOMA
     Dosage: STANDARD DOSE

REACTIONS (5)
  - Palmar-plantar erythrodysaesthesia syndrome [None]
  - Swelling of eyelid [None]
  - Thrombocytopenia [None]
  - Hypertension [None]
  - Erythema [None]
